FAERS Safety Report 10449993 (Version 2)
Quarter: 2014Q4

REPORT INFORMATION
  Report Type: Spontaneous
  Country: US (occurrence: US)
  Receive Date: 20140912
  Receipt Date: 20141010
  Transmission Date: 20150528
  Serious: Yes (Hospitalization)
  Sender: FDA-Public Use
  Company Number: US-SA-2014SA123071

PATIENT
  Age: 53 Year
  Sex: Female
  Weight: 53.97 kg

DRUGS (10)
  1. OXYGEN. [Concomitant]
     Active Substance: OXYGEN
  2. MUCINEX [Concomitant]
     Active Substance: GUAIFENESIN
  3. CHANTIX [Concomitant]
     Active Substance: VARENICLINE TARTRATE
  4. HEPARIN [Concomitant]
     Active Substance: HEPARIN SODIUM
  5. EPINEPHRINE. [Concomitant]
     Active Substance: EPINEPHRINE
  6. CEREZYME [Suspect]
     Active Substance: IMIGLUCERASE
     Indication: GAUCHER^S DISEASE
     Dosage: DOSE:44.4 UNIT(S)/KILOGRAM BODYWEIGHT
     Route: 042
     Dates: start: 20100108
  7. ALBUTEROL. [Concomitant]
     Active Substance: ALBUTEROL
  8. PREDNISONE. [Concomitant]
     Active Substance: PREDNISONE
  9. DUONEB [Concomitant]
     Active Substance: ALBUTEROL SULFATE\IPRATROPIUM BROMIDE
  10. CLARITIN [Concomitant]
     Active Substance: LORATADINE

REACTIONS (2)
  - Fungal infection [Recovered/Resolved]
  - Chronic obstructive pulmonary disease [Recovered/Resolved]

NARRATIVE: CASE EVENT DATE: 20140826
